FAERS Safety Report 10110156 (Version 1)
Quarter: 2014Q2

REPORT INFORMATION
  Report Type: Spontaneous
  Country: US (occurrence: None)
  Receive Date: 20140421
  Receipt Date: 20140421
  Transmission Date: 20141212
  Serious: No
  Sender: FDA-Public Use
  Company Number: AEGR000135

PATIENT
  Age: 41 Year
  Sex: Male
  Weight: 90.2 kg

DRUGS (9)
  1. JUXTAPID [Suspect]
     Indication: TYPE IIA HYPERLIPIDAEMIA
     Route: 048
     Dates: start: 20130401
  2. ZETIA (EZETIMIBE) [Concomitant]
  3. CRESTOR (ROSUVASTATIN CALCIUM) [Concomitant]
  4. PLAVIX (CLOPIDOGREL BISULFATE) [Concomitant]
  5. ASPIRIN (ACETYLSALICYLIC ACID) [Concomitant]
  6. LOVAZA (OMEGA-3-ACID ETHYL ESTER) [Concomitant]
  7. SERTRALINE HCL (SERTRALINE HYDROCHLORIDE) [Concomitant]
  8. METOPROLOL TARTRATE (METOPROLOL TARTRATE) [Concomitant]
  9. AMIODIPINE BESYLATE (AMLODIPINE BESILATE) [Concomitant]

REACTIONS (1)
  - Weight decreased [None]
